FAERS Safety Report 6639592-0 (Version None)
Quarter: 2010Q1

REPORT INFORMATION
  Report Type: 
  Country: None (occurrence: None)
  Receive Date: 20100318
  Receipt Date: 20100310
  Transmission Date: 20100710
  Serious: Yes (Other)
  Sender: FDA-Public Use
  Company Number: ES-MILLENNIUM PHARMACEUTICALS, INC.-2010-01180

PATIENT

DRUGS (5)
  1. VELCADE [Suspect]
     Indication: MULTIPLE MYELOMA
     Dosage: 1.3 MG, UNK
     Route: 042
     Dates: start: 20090501, end: 20100201
  2. MELPHALAN HYDROCHLORIDE [Suspect]
     Indication: MULTIPLE MYELOMA
     Dosage: UNK
     Dates: start: 20090501, end: 20100201
  3. PREDNISONE [Suspect]
     Indication: MULTIPLE MYELOMA
     Dosage: UNK
     Dates: start: 20090501, end: 20100201
  4. OMEPRAZOLE [Concomitant]
     Indication: PROPHYLAXIS
  5. ACYCLOVIR [Concomitant]
     Dosage: 800 MG, UNK
     Route: 048

REACTIONS (4)
  - DRUG INTERACTION [None]
  - HEPATITIS B [None]
  - JAUNDICE [None]
  - TRANSAMINASES INCREASED [None]
